FAERS Safety Report 8022758-5 (Version None)
Quarter: 2012Q1

REPORT INFORMATION
  Report Type: 
  Country: None (occurrence: None)
  Receive Date: 20120104
  Receipt Date: 20111227
  Transmission Date: 20120608
  Serious: Yes (Death, Hospitalization)
  Sender: FDA-Public Use
  Company Number: US-PURDUE-USA-2011-0080342

PATIENT
  Sex: Male

DRUGS (2)
  1. OXYCONTIN [Suspect]
     Indication: PANCREATIC CARCINOMA
     Dosage: 80 MG, TID
     Route: 048
  2. OXYCONTIN [Suspect]
     Dosage: 40 MG, TID
     Route: 048

REACTIONS (1)
  - CARDIAC DISORDER [None]
